FAERS Safety Report 19956279 (Version 1)
Quarter: 2021Q4

REPORT INFORMATION
  Report Type: Report from Study
  Country: NL (occurrence: NL)
  Receive Date: 20211014
  Receipt Date: 20211014
  Transmission Date: 20220303
  Serious: Yes (Hospitalization)
  Sender: FDA-Public Use
  Company Number: NL-AMGEN-NLDSL2021150768

PATIENT
  Age: 82 Year
  Sex: Male

DRUGS (16)
  1. XGEVA [Suspect]
     Active Substance: DENOSUMAB
     Indication: Prophylaxis
     Dosage: 120 MILLIGRAM/1.7 ML, Q4WK
     Route: 058
     Dates: start: 20200804
  2. OMEPRAZOLE [Concomitant]
     Active Substance: OMEPRAZOLE
     Dosage: 20 MILLIGRAM, QD
  3. POLYETHYLENE GLYCOLS [Concomitant]
     Active Substance: POLYETHYLENE GLYCOLS
     Dosage: 2SA IN MORNING AND 2SA IN EVENING
  4. CALCIUM CARBONATE\CHOLECALCIFEROL [Concomitant]
     Active Substance: CALCIUM CARBONATE\CHOLECALCIFEROL
     Dosage: 1,25G/400IE (500MG CA), BID
  5. FOLIC ACID [Concomitant]
     Active Substance: FOLIC ACID
     Dosage: 5 MILLIGRAM, 1 TPW
  6. TAMSULOSIN [Concomitant]
     Active Substance: TAMSULOSIN
     Dosage: 0.4 MILLIGRAM, QD
  7. PREDNISOLONE [Concomitant]
     Active Substance: PREDNISOLONE
     Dosage: 5 MILLIGRAM.1D2T
  8. AMOXICILLIN\CLAVULANIC ACID [Concomitant]
     Active Substance: AMOXICILLIN\CLAVULANIC ACID
     Dosage: 500/125MG.TID
  9. TRIPTORELIN [Concomitant]
     Active Substance: TRIPTORELIN
     Dosage: PDR F INJSUSP 22,5MG FL, Q6MO
  10. ABIRATERONE. [Concomitant]
     Active Substance: ABIRATERONE ACETATE
     Dosage: 500 MILLIGRAM,1D2T
  11. NAPROXEN [Concomitant]
     Active Substance: NAPROXEN
     Dosage: 500 MILLIGRAM, BID
  12. LIDOCAINE [Concomitant]
     Active Substance: LIDOCAINE
     Dosage: 20 MG/ML, 6 TIMES A DAY AS NEEDED
     Route: 048
  13. FENTANYL [Concomitant]
     Active Substance: FENTANYL
     Dosage: 50 MICROGRAM/HOUR,1D1PL/PER 3 DAYS
  14. FENTANYL [Concomitant]
     Active Substance: FENTANYL
     Dosage: 25 MICROGRAM/HOUR,1D1PL/PER 3 DAYS
  15. ACETAMINOPHEN [Concomitant]
     Active Substance: ACETAMINOPHEN
     Dosage: 2000 MILLIGRAM, QD, (500MG 4 TABLET PER DAY)
  16. PREGABALIN [Concomitant]
     Active Substance: PREGABALIN
     Dosage: 75 MILLIGRAM, BID

REACTIONS (1)
  - Osteitis [Not Recovered/Not Resolved]

NARRATIVE: CASE EVENT DATE: 20210922
